FAERS Safety Report 6935303-X (Version None)
Quarter: 2010Q3

REPORT INFORMATION
  Report Type: 
  Country: None (occurrence: None)
  Receive Date: 20100822
  Receipt Date: 20100802
  Transmission Date: 20110219
  Serious: Yes (Death)
  Sender: FDA-Public Use
  Company Number: PHHY2010US48699

PATIENT
  Sex: Female
  Weight: 36.281 kg

DRUGS (3)
  1. RECLAST [Suspect]
     Route: 042
  2. BONIVA [Concomitant]
     Dosage: 3MG
     Route: 042
     Dates: start: 20090513
  3. TRICYCLIC ANTIDEPRESSENT [Concomitant]

REACTIONS (1)
  - DEATH [None]
